FAERS Safety Report 12578093 (Version 1)
Quarter: 2016Q3

REPORT INFORMATION
  Report Type: Spontaneous
  Country: US (occurrence: None)
  Receive Date: 20160720
  Receipt Date: 20160720
  Transmission Date: 20161109
  Serious: Yes (Life-Threatening, Disabling, Other)
  Sender: FDA-Public Use
  Company Number: None

PATIENT
  Age: 28 Year
  Sex: Male
  Weight: 65.77 kg

DRUGS (1)
  1. BUPRENORPHINE, 8 MG ROXANE BOREHRINGER INGELHEIM [Suspect]
     Active Substance: BUPRENORPHINE
     Indication: PAIN
     Route: 060
     Dates: start: 20160711

REACTIONS (7)
  - Suicidal ideation [None]
  - Amnesia [None]
  - Product tampering [None]
  - Homicidal ideation [None]
  - Disinhibition [None]
  - Psychotic disorder [None]
  - Seizure [None]
